FAERS Safety Report 5257403-5 (Version None)
Quarter: 2007Q1

REPORT INFORMATION
  Report Type: 
  Country: None (occurrence: None)
  Receive Date: 20070307
  Receipt Date: 20060719
  Transmission Date: 20070707
  Serious: No
  Sender: FDA-Public Use
  Company Number: US-GLAXOSMITHKLINE-A0612831A

PATIENT
  Age: 34 Year
  Sex: Female

DRUGS (8)
  1. REQUIP [Suspect]
     Indication: RESTLESS LEGS SYNDROME
     Dosage: .25MG PER DAY
     Route: 048
  2. SEROQUEL [Concomitant]
  3. PROTONIX [Concomitant]
  4. SINGULAIR [Concomitant]
  5. LANOXIN [Concomitant]
  6. LAMICTAL [Concomitant]
  7. BUSPAR [Concomitant]
  8. PROPRANOLOL [Concomitant]

REACTIONS (8)
  - ANXIETY [None]
  - CONSTIPATION [None]
  - GASTROOESOPHAGEAL REFLUX DISEASE [None]
  - HEADACHE [None]
  - HEART RATE IRREGULAR [None]
  - HYPERHIDROSIS [None]
  - INSOMNIA [None]
  - NAUSEA [None]
